FAERS Safety Report 4429508-X (Version None)
Quarter: 2004Q3

REPORT INFORMATION
  Report Type: 
  Country: None (occurrence: None)
  Receive Date: 20040816
  Receipt Date: 20040729
  Transmission Date: 20050211
  Serious: Yes (Death, Hospitalization)
  Sender: FDA-Public Use
  Company Number: B0341753A

PATIENT
  Age: 45 Year
  Sex: Female

DRUGS (9)
  1. EPIVIR [Suspect]
     Indication: HIV INFECTION
     Dosage: 100 MG/ TWICE PER DAY/ ORAL
     Route: 048
  2. ZIAGEN [Suspect]
     Indication: HIV INFECTION
     Dosage: 100 MG/ TWICE PER DAY/ ORAL
     Route: 048
  3. INDINAVIR SULFATE (INDINAVIR SULFATE) [Suspect]
     Indication: HIV INFECTION
     Dosage: 100 MG/ TWICE PER DAY/ ORAL
     Route: 048
  4. RITONAVIR (RITONAVIR) [Suspect]
     Indication: HIV INFECTION
     Dosage: 100 MG/ TWICE PER DAY/ ORAL
     Route: 048
  5. TEICOPLANIN [Concomitant]
  6. PYRIMETHAMINE TAB [Concomitant]
  7. CLINDAMYCIN [Concomitant]
  8. GANCICLOVIR [Concomitant]
  9. PHENYTOIN [Concomitant]

REACTIONS (9)
  - ABDOMINAL PAIN [None]
  - COAGULOPATHY [None]
  - CONDITION AGGRAVATED [None]
  - ENCEPHALOPATHY [None]
  - HEPATIC FAILURE [None]
  - HEPATITIS [None]
  - IMMUNE RECONSTITUTION SYNDROME [None]
  - RENAL FAILURE [None]
  - VOMITING [None]
